FAERS Safety Report 22282972 (Version 1)
Quarter: 2023Q2

REPORT INFORMATION
  Report Type: Report from Study
  Country: US (occurrence: US)
  Receive Date: 20230504
  Receipt Date: 20230504
  Transmission Date: 20230722
  Serious: Yes (Other)
  Sender: FDA-Public Use
  Company Number: US-HBP-2023US028674

PATIENT
  Sex: Female

DRUGS (1)
  1. VALCHLOR [Suspect]
     Active Substance: MECHLORETHAMINE
     Indication: Cutaneous T-cell lymphoma
     Dosage: THIN FILM, QD
     Route: 061
     Dates: start: 20230315, end: 20230413

REACTIONS (10)
  - Cutaneous T-cell lymphoma [Unknown]
  - Skin lesion [Unknown]
  - Condition aggravated [Unknown]
  - Application site warmth [Unknown]
  - Application site reaction [Unknown]
  - Application site discolouration [Unknown]
  - Product complaint [Unknown]
  - Application site erythema [Unknown]
  - Application site dryness [Unknown]
  - Drug ineffective [Unknown]
